FAERS Safety Report 5781079-1 (Version None)
Quarter: 2008Q2

REPORT INFORMATION
  Report Type: 
  Country: None (occurrence: None)
  Receive Date: 20080620
  Receipt Date: 20080610
  Transmission Date: 20081010
  Serious: Yes (Hospitalization)
  Sender: FDA-Public Use
  Company Number: IT-PFIZER INC-2008049999

PATIENT
  Age: 69 Year
  Sex: Male

DRUGS (2)
  1. ALPROSTADIL POWDER, STERILE [Suspect]
     Indication: SYSTEMIC SCLEROSIS
     Dosage: TEXT:6 NG/KG/MINUTE
     Route: 042
  2. ASPIRIN [Concomitant]

REACTIONS (1)
  - CEREBROVASCULAR ACCIDENT [None]
